FAERS Safety Report 6266004-1 (Version None)
Quarter: 2009Q3

REPORT INFORMATION
  Report Type: 
  Country: None (occurrence: None)
  Receive Date: 20090709
  Receipt Date: 20090709
  Transmission Date: 20100115
  Serious: Yes (Other)
  Sender: FDA-Public Use
  Company Number: None

PATIENT
  Age: 42 Year
  Sex: Female
  Weight: 61.2356 kg

DRUGS (1)
  1. LEVAQUIN [Suspect]
     Indication: SINUSITIS
     Dosage: 1 TABLET DAILY 10 DAYS PO
     Route: 048
     Dates: start: 20090424, end: 20090505

REACTIONS (7)
  - BURNING SENSATION [None]
  - CHEST PAIN [None]
  - FATIGUE [None]
  - PARAESTHESIA [None]
  - PHOTOSENSITIVITY REACTION [None]
  - PRURITUS GENERALISED [None]
  - TEMPERATURE INTOLERANCE [None]
